FAERS Safety Report 5807139-4 (Version None)
Quarter: 2008Q3

REPORT INFORMATION
  Report Type: 
  Country: None (occurrence: None)
  Receive Date: 20080709
  Receipt Date: 20080709
  Transmission Date: 20090109
  Serious: Yes (Hospitalization)
  Sender: FDA-Public Use
  Company Number: None

PATIENT
  Age: 66 Year
  Sex: Male

DRUGS (2)
  1. VALSARTAN [Suspect]
     Indication: DIABETES MELLITUS
     Dosage: 320 MG DAILY PO
     Route: 048
  2. VALSARTAN [Suspect]
     Indication: HYPERTENSION
     Dosage: 320 MG DAILY PO
     Route: 048

REACTIONS (4)
  - AMINO ACID LEVEL INCREASED [None]
  - ATRIOVENTRICULAR BLOCK [None]
  - DEHYDRATION [None]
  - NODAL RHYTHM [None]
